FAERS Safety Report 5021360-7 (Version None)
Quarter: 2006Q2

REPORT INFORMATION
  Report Type: 
  Country: None (occurrence: None)
  Receive Date: 20060608
  Receipt Date: 20060111
  Transmission Date: 20061013
  Serious: No
  Sender: FDA-Public Use
  Company Number: US-BRISTOL-MYERS SQUIBB COMPANY-13244496

PATIENT
  Sex: Female

DRUGS (1)
  1. SINEMET [Suspect]

REACTIONS (1)
  - HALLUCINATION [None]
